FAERS Safety Report 7262968-8 (Version None)
Quarter: 2011Q1

REPORT INFORMATION
  Report Type: 
  Country: None (occurrence: None)
  Receive Date: 20110130
  Receipt Date: 20101004
  Transmission Date: 20110831
  Serious: No
  Sender: FDA-Public Use
  Company Number: US-ABBOTT-10P-163-0676098-00

PATIENT
  Sex: Female
  Weight: 90.8 kg

DRUGS (6)
  1. ALEVE [Concomitant]
     Indication: PAIN
  2. FLEXERIL [Concomitant]
     Indication: ANKYLOSING SPONDYLITIS
  3. MOTRIN [Concomitant]
     Indication: PAIN
  4. HUMIRA [Suspect]
     Indication: ANKYLOSING SPONDYLITIS
     Dates: start: 20090101
  5. TYLENOL W/ CODEINE [Concomitant]
     Indication: PAIN
  6. TYLENOL-500 [Concomitant]
     Indication: PAIN

REACTIONS (3)
  - DEVICE MALFUNCTION [None]
  - DRUG DOSE OMISSION [None]
  - INJECTION SITE PAIN [None]
